FAERS Safety Report 10935238 (Version 1)
Quarter: 2015Q1

REPORT INFORMATION
  Report Type: Spontaneous
  Country: US (occurrence: None)
  Receive Date: 20150129
  Receipt Date: 20150129
  Transmission Date: 20150721
  Serious: No
  Sender: FDA-Public Use
  Company Number: A-NJ2014-106355

PATIENT
  Age: 42 Year
  Sex: Female

DRUGS (2)
  1. OPSUMIT [Suspect]
     Active Substance: MACITENTAN
     Indication: COR PULMONALE CHRONIC
     Route: 048
     Dates: start: 20140510
  2. REMODULIN [Concomitant]
     Active Substance: TREPROSTINIL

REACTIONS (5)
  - Injection site inflammation [None]
  - Catheter site erythema [None]
  - Catheter site haemorrhage [None]
  - Catheter site pain [None]
  - Catheter site swelling [None]

NARRATIVE: CASE EVENT DATE: 20140930
